FAERS Safety Report 6139101-9 (Version None)
Quarter: 2009Q1

REPORT INFORMATION
  Report Type: 
  Country: None (occurrence: None)
  Receive Date: 20090324
  Receipt Date: 20090313
  Transmission Date: 20090719
  Serious: Yes (Other)
  Sender: FDA-Public Use
  Company Number: 2009-00005

PATIENT
  Sex: Female

DRUGS (1)
  1. SOOTHING CARE MEDICATED POWDER [Suspect]
     Indication: THERAPEUTIC SKIN CARE TOPICAL
     Dosage: TOPICAL AS NEEDED
     Route: 061
     Dates: start: 20060101

REACTIONS (2)
  - CHEST X-RAY ABNORMAL [None]
  - DYSPNOEA [None]
